FAERS Safety Report 6300480-0 (Version None)
Quarter: 2009Q3

REPORT INFORMATION
  Report Type: 
  Country: None (occurrence: None)
  Receive Date: 20090806
  Receipt Date: 20081009
  Transmission Date: 20100115
  Serious: No
  Sender: FDA-Public Use
  Company Number: US-ABBOTT-08P-163-0481168-00

PATIENT
  Sex: Male

DRUGS (2)
  1. DEPAKOTE ER [Suspect]
     Indication: CONVULSION
     Dosage: DEPAKOTE 500MG AT NIGHT
     Route: 048
     Dates: start: 20060101, end: 20080901
  2. DEPAKOTE ER [Suspect]
     Dosage: DEPAKOTE ER
     Route: 048
     Dates: start: 20080901

REACTIONS (2)
  - CATATONIA [None]
  - CONVULSION [None]
